FAERS Safety Report 15541120 (Version 1)
Quarter: 2018Q4

REPORT INFORMATION
  Report Type: Spontaneous
  Country: US (occurrence: US)
  Receive Date: 20181017
  Receipt Date: 20181017
  Transmission Date: 20190205
  Serious: No
  Sender: FDA-Public Use
  Company Number: None

PATIENT
  Age: 51 Year
  Sex: Male

DRUGS (1)
  1. TRIUMEQ [Suspect]
     Active Substance: ABACAVIR SULFATE\DOLUTEGRAVIR SODIUM\LAMIVUDINE
     Dates: start: 20181010, end: 20181014

REACTIONS (4)
  - Diarrhoea [None]
  - Drug hypersensitivity [None]
  - Rash [None]
  - Pain [None]

NARRATIVE: CASE EVENT DATE: 20181015
